FAERS Safety Report 25164134 (Version 1)
Quarter: 2025Q2

REPORT INFORMATION
  Report Type: Spontaneous
  Country: US (occurrence: US)
  Receive Date: 20250405
  Receipt Date: 20250405
  Transmission Date: 20250716
  Serious: Yes (Other)
  Sender: ABBVIE
  Company Number: US-ABBVIE-6206540

PATIENT
  Age: 51 Year
  Sex: Female

DRUGS (1)
  1. RISANKIZUMAB [Suspect]
     Active Substance: RISANKIZUMAB
     Indication: Crohn^s disease
     Route: 058

REACTIONS (13)
  - Ostomy bag placement [Unknown]
  - COVID-19 [Unknown]
  - Cystitis interstitial [Unknown]
  - Headache [Unknown]
  - Breast abscess [Unknown]
  - Subcutaneous abscess [Unknown]
  - Device issue [Unknown]
  - Feeling abnormal [Unknown]
  - Fibromyalgia [Unknown]
  - Illness [Unknown]
  - Hypersomnia [Unknown]
  - Incorrect dose administered [Unknown]
  - Perirectal abscess [Unknown]

NARRATIVE: CASE EVENT DATE: 20250327
